FAERS Safety Report 16919885 (Version 1)
Quarter: 2019Q4

REPORT INFORMATION
  Report Type: Spontaneous
  Country: CN (occurrence: CN)
  Receive Date: 20191015
  Receipt Date: 20191015
  Transmission Date: 20200122
  Serious: Yes (Other)
  Sender: FDA-Public Use
  Company Number: CN-PFIZER INC-2019435905

PATIENT
  Age: 31 Year
  Sex: Male

DRUGS (1)
  1. VIAGRA [Suspect]
     Active Substance: SILDENAFIL CITRATE
     Indication: LIBIDO DECREASED
     Dosage: 1 TABLET, SINGLE
     Route: 048

REACTIONS (8)
  - Product use in unapproved indication [Unknown]
  - Suspected counterfeit product [Not Recovered/Not Resolved]
  - Feeling hot [Unknown]
  - Dizziness [Not Recovered/Not Resolved]
  - Vomiting [Not Recovered/Not Resolved]
  - Nausea [Not Recovered/Not Resolved]
  - Panic reaction [Not Recovered/Not Resolved]
  - Off label use [Unknown]
